FAERS Safety Report 15869356 (Version 1)
Quarter: 2019Q1

REPORT INFORMATION
  Report Type: Spontaneous
  Country: FR (occurrence: FR)
  Receive Date: 20190125
  Receipt Date: 20190125
  Transmission Date: 20190417
  Serious: Yes (Death)
  Sender: FDA-Public Use
  Company Number: FR-PURDUE PHARMA-GBR-2019-0063537

PATIENT
  Age: 74 Year
  Sex: Male

DRUGS (1)
  1. OXYNORM [Suspect]
     Active Substance: OXYCODONE HYDROCHLORIDE
     Indication: PAIN
     Dosage: 1 DF, UNK
     Route: 042
     Dates: start: 20181102

REACTIONS (6)
  - Urinary retention [Fatal]
  - Confusional state [Fatal]
  - Device programming error [Fatal]
  - Faecaloma [Fatal]
  - Accidental overdose [Fatal]
  - Miosis [Fatal]

NARRATIVE: CASE EVENT DATE: 20181102
